FAERS Safety Report 6397845-8 (Version None)
Quarter: 2009Q4

REPORT INFORMATION
  Report Type: 
  Country: None (occurrence: None)
  Receive Date: 20091013
  Receipt Date: 20091002
  Transmission Date: 20100525
  Serious: Yes (Other)
  Sender: FDA-Public Use
  Company Number: US-BIOGENIDEC-2009BI007650

PATIENT
  Age: 49 Year
  Sex: Female

DRUGS (1)
  1. TYSABRI [Suspect]
     Indication: MULTIPLE SCLEROSIS
     Route: 042
     Dates: start: 20080903, end: 20081201

REACTIONS (6)
  - BREAST HYPERPLASIA [None]
  - DIARRHOEA [None]
  - FIBROADENOMA OF BREAST [None]
  - IRRITABLE BOWEL SYNDROME [None]
  - STRESS [None]
  - VOMITING [None]
